FAERS Safety Report 8398717-X (Version None)
Quarter: 2012Q2

REPORT INFORMATION
  Report Type: 
  Country: None (occurrence: None)
  Receive Date: 20120531
  Receipt Date: 20120522
  Transmission Date: 20120825
  Serious: Yes (Disabling, Other)
  Sender: FDA-Public Use
  Company Number: US-CELGENEUS-163-20785-12053220

PATIENT
  Sex: Male

DRUGS (6)
  1. PREDNISONE TAB [Concomitant]
     Indication: MULTIPLE MYELOMA
     Route: 065
     Dates: start: 20120112, end: 20120330
  2. AMIODARONE HCL [Concomitant]
     Route: 065
  3. THALOMID [Suspect]
     Indication: MULTIPLE MYELOMA
     Dosage: 100 MILLIGRAM
     Route: 048
     Dates: start: 20120112, end: 20120330
  4. TIAZAC [Concomitant]
     Route: 065
  5. LOPRESSOR [Concomitant]
     Route: 065
  6. MELPHALAN HYDROCHLORIDE [Concomitant]
     Route: 065
     Dates: start: 20120112, end: 20120330

REACTIONS (3)
  - TREMOR [None]
  - AMNESIA [None]
  - CONVULSION [None]
